FAERS Safety Report 7074151-X (Version None)
Quarter: 2010Q4

REPORT INFORMATION
  Report Type: 
  Country: None (occurrence: None)
  Receive Date: 20101029
  Receipt Date: 20101020
  Transmission Date: 20110411
  Serious: Yes (Other)
  Sender: FDA-Public Use
  Company Number: JP-PFIZER INC-2010133439

PATIENT

DRUGS (3)
  1. LYRICA [Suspect]
     Indication: HERPES ZOSTER
     Dosage: UNK
     Route: 048
     Dates: start: 20101017
  2. CALONAL [Concomitant]
     Dosage: UNK
     Dates: start: 20101015
  3. ACICLOVIR [Concomitant]
     Dosage: UNK
     Dates: start: 20101015

REACTIONS (1)
  - NEUTROPHIL COUNT DECREASED [None]
